FAERS Safety Report 6410591-7 (Version None)
Quarter: 2009Q4

REPORT INFORMATION
  Report Type: 
  Country: None (occurrence: None)
  Receive Date: 20091022
  Receipt Date: 20091012
  Transmission Date: 20100525
  Serious: Yes (Hospitalization)
  Sender: FDA-Public Use
  Company Number: US-BIOGENIDEC-196908

PATIENT
  Age: 33 Year
  Sex: Male
  Weight: 54 kg

DRUGS (2)
  1. AVONEX [Suspect]
     Indication: MULTIPLE SCLEROSIS
     Route: 030
     Dates: start: 20030709
  2. MEDICATION (NOS) [Concomitant]
     Indication: TREMOR

REACTIONS (6)
  - APPENDICITIS [None]
  - APPENDICITIS PERFORATED [None]
  - INFUSION SITE EXTRAVASATION [None]
  - MULTIPLE SCLEROSIS [None]
  - PYREXIA [None]
  - VOMITING [None]
